FAERS Safety Report 6140789-7 (Version None)
Quarter: 2009Q2

REPORT INFORMATION
  Report Type: 
  Country: None (occurrence: None)
  Receive Date: 20090402
  Receipt Date: 20090323
  Transmission Date: 20091009
  Serious: Yes (Other)
  Sender: FDA-Public Use
  Company Number: US-PFIZER INC-2009187666

PATIENT
  Age: 64 Year
  Sex: Male

DRUGS (1)
  1. NARDIL [Suspect]

REACTIONS (3)
  - CEREBROVASCULAR ACCIDENT [None]
  - DRUG LEVEL INCREASED [None]
  - HYPERTENSIVE CRISIS [None]
